FAERS Safety Report 7813425-9 (Version None)
Quarter: 2011Q4

REPORT INFORMATION
  Report Type: 
  Country: None (occurrence: None)
  Receive Date: 20111014
  Receipt Date: 20111004
  Transmission Date: 20120403
  Serious: Yes (Hospitalization, Other)
  Sender: FDA-Public Use
  Company Number: US-BIOGENIDEC-2010BI038336

PATIENT
  Sex: Female

DRUGS (2)
  1. AVONEX [Suspect]
     Indication: MULTIPLE SCLEROSIS
     Route: 030
     Dates: start: 20090117
  2. AVONEX [Suspect]
     Route: 030
     Dates: start: 20031007, end: 20040331

REACTIONS (6)
  - WOUND INFECTION [None]
  - DEBRIDEMENT [None]
  - CONVULSION [None]
  - SURGERY [None]
  - IMPAIRED HEALING [None]
  - THYROID FUNCTION TEST ABNORMAL [None]
